FAERS Safety Report 22321311 (Version 2)
Quarter: 2023Q2

REPORT INFORMATION
  Report Type: Report from Study
  Country: US (occurrence: US)
  Receive Date: 20230515
  Receipt Date: 20230525
  Transmission Date: 20230721
  Serious: Yes (Other)
  Sender: FDA-Public Use
  Company Number: US-ABBVIE-4765813

PATIENT
  Age: 79 Year
  Sex: Female

DRUGS (21)
  1. VENCLEXTA [Suspect]
     Active Substance: VENETOCLAX
     Indication: Plasma cell myeloma
     Dosage: FORM STRENGTH: 100MG
     Route: 048
     Dates: start: 20230214
  2. LIDOCAINE [Concomitant]
     Active Substance: LIDOCAINE
     Indication: Product used for unknown indication
     Dosage: 5% PATCH?FREQUENCY TEXT: APPLY 1 PATCH ONTO THE SKIN EVERY 24 HRS
     Route: 062
     Dates: start: 20220705
  3. POMALIDOMIDE [Concomitant]
     Active Substance: POMALIDOMIDE
     Indication: Product used for unknown indication
     Dosage: FORM STRENGTH: 2MG?DOSAGE TEXT - TAKE 1 CAPSULE BY MOUTH DAILY . TAKE ON DAY 1-21 REPEAT EVERY 28...
     Route: 048
     Dates: start: 20230406, end: 20230504
  4. POMALIDOMIDE [Concomitant]
     Active Substance: POMALIDOMIDE
     Indication: Product used for unknown indication
     Dosage: FORM STRENGTH: 2MG?DOSAGE TEXT - TAKE 1 CAPSULE BY MOUTH DAILY . TAKE ON DAY 1-21 REPEAT EVERY 28...
     Route: 048
     Dates: start: 20230308, end: 20230406
  5. POMALIDOMIDE [Concomitant]
     Active Substance: POMALIDOMIDE
     Indication: Product used for unknown indication
     Dosage: FORM STRENGTH: 2MG?DOSAGE TEXT - TAKE 1 CAPSULE BY MOUTH DAILY . TAKE ON DAY 1-21 REPEAT EVERY 28...
     Route: 048
     Dates: start: 20230504
  6. DEXAMETHASONE [Concomitant]
     Active Substance: DEXAMETHASONE
     Indication: Product used for unknown indication
     Dosage: FORM STRENGTH: 4MG
     Route: 048
     Dates: start: 20221006, end: 20230424
  7. DEXAMETHASONE [Concomitant]
     Active Substance: DEXAMETHASONE
     Indication: Product used for unknown indication
     Dosage: FORM STRENGTH: 4MG
     Route: 048
     Dates: start: 20230424
  8. VITAMIN C [Concomitant]
     Active Substance: ASCORBIC ACID
     Indication: Product used for unknown indication
     Dosage: FORM STRENGTH: 1000MG
     Route: 048
     Dates: start: 20201026
  9. ASPIRIN [Concomitant]
     Active Substance: ASPIRIN
     Indication: Product used for unknown indication
     Dosage: FORM STRENGTH: 81 MG
     Route: 048
     Dates: start: 20201026
  10. CHOLESTYRAMINE [Concomitant]
     Active Substance: CHOLESTYRAMINE
     Indication: Product used for unknown indication
     Dosage: FORM STRENGTH: 4 G?TAKE 4 G BY MOUTH DAILY . DISSOLVE IN 4-8 OUNCE WATER TAKE OTHER MEDICATION 1 ...
     Route: 048
  11. ONDANSETRON [Concomitant]
     Active Substance: ONDANSETRON
     Indication: Nausea
     Dosage: FORM STRENGTH: 8MG
     Route: 048
     Dates: start: 20220317
  12. HYDROCHLOROTHIAZIDE [Concomitant]
     Active Substance: HYDROCHLOROTHIAZIDE
     Indication: Swelling
     Dosage: FORM STRENGTH: 12.5MG
     Route: 048
  13. IRBESARTAN [Concomitant]
     Active Substance: IRBESARTAN
     Indication: Product used for unknown indication
     Dosage: FORM STRENGTH: 300MG
     Route: 048
     Dates: start: 20201026
  14. CHOLECALCIFEROL [Concomitant]
     Active Substance: CHOLECALCIFEROL
     Indication: Product used for unknown indication
     Dosage: FORM STRENGTH: 500MCG
     Route: 048
     Dates: start: 20201026
  15. SULFAMETHOXAZOLE\TRIMETHOPRIM [Concomitant]
     Active Substance: SULFAMETHOXAZOLE\TRIMETHOPRIM
     Indication: Product used for unknown indication
     Dosage: 800-160MG TABLET
     Route: 048
     Dates: start: 20230117
  16. ICOSAPENT ETHYL [Concomitant]
     Active Substance: ICOSAPENT ETHYL
     Indication: Product used for unknown indication
     Dosage: FORM STRENGTH: 1G
     Route: 048
     Dates: start: 20201026
  17. CEFPODOXIME [Concomitant]
     Active Substance: CEFPODOXIME
     Indication: Product used for unknown indication
     Dosage: FORM STRENGTH: 200 MG
     Route: 048
     Dates: start: 20230117
  18. LEVOTHYROXINE [Concomitant]
     Active Substance: LEVOTHYROXINE
     Indication: Product used for unknown indication
     Dosage: FORM STRENGTH: 50MCG
     Route: 048
     Dates: start: 20201026
  19. ACYCLOVIR [Concomitant]
     Active Substance: ACYCLOVIR
     Indication: Product used for unknown indication
     Route: 048
     Dates: start: 20201026
  20. ACYCLOVIR [Concomitant]
     Active Substance: ACYCLOVIR
     Indication: Product used for unknown indication
     Route: 048
     Dates: start: 20221117, end: 20230406
  21. IBUPROFEN [Suspect]
     Active Substance: IBUPROFEN
     Indication: Product used for unknown indication
     Route: 065
     Dates: start: 20230406

REACTIONS (3)
  - Agranulocytosis [Not Recovered/Not Resolved]
  - Off label use [Unknown]
  - Drug hypersensitivity [Unknown]

NARRATIVE: CASE EVENT DATE: 20230313
